FAERS Safety Report 6965636-2 (Version None)
Quarter: 2010Q3

REPORT INFORMATION
  Report Type: 
  Country: None (occurrence: None)
  Receive Date: 20100903
  Receipt Date: 20100827
  Transmission Date: 20110219
  Serious: Yes (Hospitalization)
  Sender: FDA-Public Use
  Company Number: US-JNJFOC-20100809156

PATIENT
  Age: 55 Year
  Sex: Female

DRUGS (8)
  1. REMICADE [Suspect]
     Indication: PSORIASIS
     Route: 042
  2. REMICADE [Suspect]
     Indication: RHEUMATOID ARTHRITIS
     Route: 042
  3. STEROIDS NOS [Suspect]
     Indication: PSORIASIS
  4. STEROIDS NOS [Suspect]
     Indication: RHEUMATOID ARTHRITIS
  5. UNSPECIFIED NARCOTIC [Suspect]
     Indication: PAIN
  6. LEVOTHYROXINE [Concomitant]
     Indication: THYROIDECTOMY
  7. METHOTREXATE [Concomitant]
     Indication: PSORIASIS
  8. METHOTREXATE [Concomitant]
     Indication: RHEUMATOID ARTHRITIS

REACTIONS (9)
  - AMNESIA [None]
  - BLOOD CHOLESTEROL INCREASED [None]
  - DRUG INEFFECTIVE [None]
  - EAR INFECTION [None]
  - FIBROMYALGIA [None]
  - PSORIASIS [None]
  - RHEUMATOID ARTHRITIS [None]
  - TOOTH INFECTION [None]
  - WEIGHT INCREASED [None]
